FAERS Safety Report 13116692 (Version 1)
Quarter: 2017Q1

REPORT INFORMATION
  Report Type: Report from Study
  Country: CA (occurrence: CA)
  Receive Date: 20170116
  Receipt Date: 20170116
  Transmission Date: 20170428
  Serious: Yes (Other)
  Sender: FDA-Public Use
  Company Number: CA-AMGEN-CANSL2016156910

PATIENT
  Age: 75 Year
  Sex: Female
  Weight: 47.1 kg

DRUGS (10)
  1. COREX [Concomitant]
     Dosage: 5 MG, QD
  2. VITAMIN E [Concomitant]
     Active Substance: .ALPHA.-TOCOPHEROL
  3. INDAPAMIDE. [Concomitant]
     Active Substance: INDAPAMIDE
     Dosage: 1.25 MG, UNK
  4. TRAZODONE [Concomitant]
     Active Substance: TRAZODONE HYDROCHLORIDE
     Dosage: 50 MG, QD
  5. PROLIA [Suspect]
     Active Substance: DENOSUMAB
     Indication: OSTEOPOROSIS
     Dosage: 60 MG, Q6MO
     Route: 058
     Dates: start: 20150708, end: 201607
  6. ROSUVASTATIN. [Concomitant]
     Active Substance: ROSUVASTATIN
     Dosage: 5 MG,(EVERY SECOND DAY) UNK
  7. COVERSYL [Concomitant]
     Active Substance: PERINDOPRIL
     Dosage: 4 MG, UNK
  8. ASPIRIN. [Concomitant]
     Active Substance: ASPIRIN
     Dosage: 81 MG, QD
  9. VITAMIN D [Concomitant]
     Active Substance: CHOLECALCIFEROL
     Dosage: 3000 IU, QD
  10. TECTA [Concomitant]
     Active Substance: PANTOPRAZOLE MAGNESIUM
     Indication: GASTROOESOPHAGEAL REFLUX DISEASE
     Dosage: 40 MG, UNK

REACTIONS (17)
  - Productive cough [Unknown]
  - Oral candidiasis [Unknown]
  - Muscle disorder [Unknown]
  - Gastrooesophageal reflux disease [Unknown]
  - Eczema [Unknown]
  - Skin exfoliation [Unknown]
  - Dry mouth [Not Recovered/Not Resolved]
  - Respiratory tract congestion [Unknown]
  - Skin lesion [Recovered/Resolved]
  - Feeling abnormal [Unknown]
  - Upper-airway cough syndrome [Unknown]
  - Dysgeusia [Unknown]
  - Blister [Unknown]
  - Skin irritation [Unknown]
  - Oral herpes [Unknown]
  - Pruritus [Unknown]
  - Skin discomfort [Unknown]

NARRATIVE: CASE EVENT DATE: 201512
